FAERS Safety Report 19057310 (Version 1)
Quarter: 2021Q1

REPORT INFORMATION
  Report Type: Other
  Country: CN (occurrence: CN)
  Receive Date: 20210324
  Receipt Date: 20210324
  Transmission Date: 20210420
  Serious: Yes (Death, Other)
  Sender: FDA-Public Use
  Company Number: CN-ROCHE-2791551

PATIENT

DRUGS (1)
  1. ATEZOLIZUMAB. [Suspect]
     Active Substance: ATEZOLIZUMAB
     Indication: PRODUCT USED FOR UNKNOWN INDICATION
     Route: 065

REACTIONS (48)
  - Myocarditis [Fatal]
  - Syncope [Unknown]
  - Pericardial effusion [Unknown]
  - Cardiac disorder [Unknown]
  - Sudden death [Fatal]
  - Ascites [Unknown]
  - Cardiac arrest [Unknown]
  - Acute coronary syndrome [Unknown]
  - Supraventricular tachycardia [Unknown]
  - Chest pain [Unknown]
  - Presyncope [Unknown]
  - Acute myocardial infarction [Unknown]
  - Chest discomfort [Unknown]
  - Atrial flutter [Unknown]
  - Cardiovascular disorder [Unknown]
  - Atrial fibrillation [Unknown]
  - Cardiac failure [Unknown]
  - Arrhythmia [Unknown]
  - Atrioventricular block complete [Unknown]
  - Cardiogenic shock [Unknown]
  - Stress cardiomyopathy [Unknown]
  - Dizziness [Unknown]
  - Dyspnoea [Unknown]
  - Pericarditis [Unknown]
  - Cardiac tamponade [Unknown]
  - Cardiomyopathy [Unknown]
  - Angina pectoris [Unknown]
  - Cardiac failure acute [Unknown]
  - Ventricular arrhythmia [Unknown]
  - Pulmonary oedema [Unknown]
  - Bradycardia [Unknown]
  - Acute pulmonary oedema [Unknown]
  - Sinus tachycardia [Unknown]
  - Peripheral swelling [Unknown]
  - Haemoptysis [Unknown]
  - Autoimmune myocarditis [Unknown]
  - Localised oedema [Unknown]
  - Cardiac failure congestive [Unknown]
  - Left ventricular dysfunction [Unknown]
  - Atrioventricular block [Unknown]
  - Sinus bradycardia [Unknown]
  - Myocardial infarction [Unknown]
  - Cardio-respiratory arrest [Unknown]
  - Intracardiac thrombus [Unknown]
  - Palpitations [Unknown]
  - Oedema peripheral [Unknown]
  - Tachycardia [Unknown]
  - Dyspnoea exertional [Unknown]
